FAERS Safety Report 23765605 (Version 2)
Quarter: 2024Q2

REPORT INFORMATION
  Report Type: Spontaneous
  Country: US (occurrence: None)
  Receive Date: 20240420
  Receipt Date: 20240521
  Transmission Date: 20240717
  Serious: No
  Sender: FDA-Public Use
  Company Number: 2024A088127

PATIENT
  Age: 75 Year
  Sex: Male
  Weight: 104.3 kg

DRUGS (5)
  1. TEZSPIRE [Suspect]
     Active Substance: TEZEPELUMAB-EKKO
     Indication: Asthma
     Route: 058
  2. TRELEGY ELLIPTA [Concomitant]
     Active Substance: FLUTICASONE FUROATE\UMECLIDINIUM BROMIDE\VILANTEROL TRIFENATATE
     Dosage: 200MG
  3. VITAMIN B12 [Concomitant]
     Active Substance: CYANOCOBALAMIN
  4. ALBUTEROL [Concomitant]
     Active Substance: ALBUTEROL
  5. MAGNESIUM [Concomitant]
     Active Substance: MAGNESIUM

REACTIONS (3)
  - Arthralgia [Recovered/Resolved]
  - Neuropathy peripheral [Unknown]
  - Drug intolerance [Unknown]

NARRATIVE: CASE EVENT DATE: 20240410
